FAERS Safety Report 10330632 (Version 2)
Quarter: 2014Q3

REPORT INFORMATION
  Report Type: Spontaneous
  Country: CN (occurrence: None)
  Receive Date: 20140717
  Receipt Date: 20140826
  Transmission Date: 20150326
  Serious: Yes (Other)
  Sender: FDA-Public Use
  Company Number: VAL_03216_2014

PATIENT
  Age: 55 Year
  Sex: Male

DRUGS (1)
  1. LOTENSIN [Suspect]
     Active Substance: BENAZEPRIL HYDROCHLORIDE
     Indication: HYPERTENSION
     Dosage: 10 MG QD ORAL.
     Route: 048
     Dates: start: 2011

REACTIONS (3)
  - Product quality issue [None]
  - No therapeutic response [None]
  - Blood pressure increased [None]

NARRATIVE: CASE EVENT DATE: 2012
